FAERS Safety Report 12601559 (Version 18)
Quarter: 2021Q3

REPORT INFORMATION
  Report Type: Report from Study
  Country: CA (occurrence: CA)
  Receive Date: 20160728
  Receipt Date: 20210814
  Transmission Date: 20211014
  Serious: Yes (Hospitalization, Other)
  Sender: FDA-Public Use
  Company Number: PHHY2013CA096983

PATIENT
  Age: 64 Year
  Sex: Female

DRUGS (7)
  1. SANDOSTATIN [Suspect]
     Active Substance: OCTREOTIDE ACETATE
  2. SANDOSTATIN LAR DEPOT [Suspect]
     Active Substance: OCTREOTIDE ACETATE
     Dosage: 60 MG, QMO
     Route: 030
     Dates: start: 20130916
  3. SANDOSTATIN [Suspect]
     Active Substance: OCTREOTIDE ACETATE
  4. SANDOSTATIN LAR DEPOT [Suspect]
     Active Substance: OCTREOTIDE ACETATE
     Indication: NEUROENDOCRINE TUMOUR
     Dosage: 40 MG, QMO
     Route: 030
     Dates: start: 20130916
  5. SANDOSTATIN [Suspect]
     Active Substance: OCTREOTIDE ACETATE
     Indication: NEUROENDOCRINE TUMOUR
     Dosage: 100 UG, QID
     Route: 058
     Dates: start: 20130723
  6. SANDOSTATIN LAR DEPOT [Suspect]
     Active Substance: OCTREOTIDE ACETATE
  7. LOMOTIL [Concomitant]
     Active Substance: ATROPINE SULFATE\DIPHENOXYLATE HYDROCHLORIDE
     Indication: PRODUCT USED FOR UNKNOWN INDICATION
     Dosage: UNK, QID (PRN)
     Route: 065

REACTIONS (15)
  - Cough [Unknown]
  - Illness [Unknown]
  - Breast pain [Unknown]
  - Osteoarthritis [Unknown]
  - Blood pressure systolic increased [Unknown]
  - Wound [Unknown]
  - Haematochezia [Unknown]
  - Pneumonia [Unknown]
  - Injury [Unknown]
  - Osteomyelitis [Unknown]
  - Vomiting [Unknown]
  - Upper respiratory tract infection [Unknown]
  - Bone cyst [Unknown]
  - Injection site pruritus [Unknown]
  - Localised infection [Unknown]

NARRATIVE: CASE EVENT DATE: 20141209
